FAERS Safety Report 11127569 (Version 2)
Quarter: 2015Q2

REPORT INFORMATION
  Report Type: Spontaneous
  Country: US (occurrence: US)
  Receive Date: 20150521
  Receipt Date: 20150522
  Transmission Date: 20150821
  Serious: Yes (Other)
  Sender: FDA-Public Use
  Company Number: US-TEVA-563934ACC

PATIENT
  Age: 42 Year
  Sex: Female
  Weight: 92.62 kg

DRUGS (1)
  1. PARAGARD T 380A [Suspect]
     Active Substance: COPPER
     Indication: CONTRACEPTION
     Route: 015
     Dates: start: 20080915, end: 20150512

REACTIONS (6)
  - Uterine pain [Not Recovered/Not Resolved]
  - Embedded device [Unknown]
  - Device breakage [Not Recovered/Not Resolved]
  - Device dislocation [Unknown]
  - Bladder discomfort [Not Recovered/Not Resolved]
  - Vaginal haemorrhage [Not Recovered/Not Resolved]

NARRATIVE: CASE EVENT DATE: 201411
